FAERS Safety Report 20934446 (Version 2)
Quarter: 2022Q3

REPORT INFORMATION
  Report Type: Report from Study
  Country: US (occurrence: US)
  Receive Date: 20220608
  Receipt Date: 20220822
  Transmission Date: 20221026
  Serious: Yes (Other)
  Sender: FDA-Public Use
  Company Number: US-PFIZER INC-202200419915

PATIENT
  Age: 62 Year
  Sex: Female

DRUGS (3)
  1. IBRANCE [Suspect]
     Active Substance: PALBOCICLIB
     Dosage: 100 MG
     Dates: start: 20220110
  2. IBRANCE [Suspect]
     Active Substance: PALBOCICLIB
     Dosage: 125 MG
  3. IBRANCE [Suspect]
     Active Substance: PALBOCICLIB
     Dosage: 100 MG, CYCLIC

REACTIONS (25)
  - Haemorrhage [Unknown]
  - Pulmonary oedema [Unknown]
  - Epistaxis [Unknown]
  - Cough [Unknown]
  - Urinary tract infection [Unknown]
  - Chills [Unknown]
  - Asthenia [Unknown]
  - Nausea [Unknown]
  - White blood cell count decreased [Unknown]
  - Alopecia [Unknown]
  - Oedema [Unknown]
  - Neoplasm progression [Unknown]
  - Pain [Unknown]
  - Back pain [Unknown]
  - Arthralgia [Unknown]
  - Pain in extremity [Unknown]
  - Joint swelling [Unknown]
  - Depression [Unknown]
  - Bone pain [Unknown]
  - Pruritus [Unknown]
  - Dizziness [Unknown]
  - Somnolence [Unknown]
  - Decreased appetite [Unknown]
  - Night sweats [Unknown]
  - Fatigue [Unknown]

NARRATIVE: CASE EVENT DATE: 20220101
